FAERS Safety Report 13386460 (Version 1)
Quarter: 2017Q1

REPORT INFORMATION
  Report Type: Spontaneous
  Country: JP (occurrence: JP)
  Receive Date: 20170330
  Receipt Date: 20170330
  Transmission Date: 20170429
  Serious: Yes (Other)
  Sender: FDA-Public Use
  Company Number: JP-ROCHE-1913812

PATIENT
  Age: 61 Year
  Sex: Female

DRUGS (1)
  1. TAMIFLU [Suspect]
     Active Substance: OSELTAMIVIR PHOSPHATE
     Indication: PRODUCT USED FOR UNKNOWN INDICATION
     Dosage: DOSAGE IS UNCERTAIN.?DATE OF LAST DOSE: /MAR/2016
     Route: 048
     Dates: start: 201602

REACTIONS (2)
  - Interstitial lung disease [Unknown]
  - Drug-induced liver injury [Unknown]
